FAERS Safety Report 17760819 (Version 1)
Quarter: 2020Q2

REPORT INFORMATION
  Report Type: Spontaneous
  Country: CA (occurrence: CA)
  Receive Date: 20200508
  Receipt Date: 20200508
  Transmission Date: 20200714
  Serious: Yes (Other)
  Sender: FDA-Public Use
  Company Number: CA-TEVA-2020-CA-1233035

PATIENT
  Sex: Female

DRUGS (1)
  1. 5 AMINO-SALICYLATE(ASA) [Suspect]
     Active Substance: MESALAMINE
     Route: 065

REACTIONS (2)
  - Drug hypersensitivity [Unknown]
  - Haematochezia [Unknown]
